FAERS Safety Report 9143962 (Version 1)
Quarter: 2013Q1

REPORT INFORMATION
  Report Type: Spontaneous
  Country: BR (occurrence: BR)
  Receive Date: 20130306
  Receipt Date: 20130306
  Transmission Date: 20140127
  Serious: Yes (Death, Hospitalization, Other)
  Sender: FDA-Public Use
  Company Number: PHHY2013BR022050

PATIENT
  Sex: Female

DRUGS (3)
  1. DIOVAN [Suspect]
     Indication: HYPERTENSION
     Dosage: 1 DF, DAILY IN THE MORNING
     Route: 048
  2. AMIODARONE [Concomitant]
     Indication: CARDIAC DISORDER
  3. DIURETICS [Concomitant]

REACTIONS (4)
  - Multi-organ failure [Fatal]
  - Lung disorder [Not Recovered/Not Resolved]
  - Cough [Not Recovered/Not Resolved]
  - Renal disorder [Not Recovered/Not Resolved]
